FAERS Safety Report 4915774-0 (Version None)
Quarter: 2006Q1

REPORT INFORMATION
  Report Type: 
  Country: None (occurrence: None)
  Receive Date: 20060113
  Receipt Date: 20051003
  Transmission Date: 20060701
  Serious: No
  Sender: FDA-Public Use
  Company Number: 2005SP003317

PATIENT
  Age: 53 Year
  Sex: Female

DRUGS (3)
  1. LUNESTA [Suspect]
     Indication: INSOMNIA
     Dosage: 1 MG;HS;ORAL ; 2 MG;1X;ORAL
     Route: 048
     Dates: start: 20050901, end: 20051001
  2. LUNESTA [Suspect]
     Indication: INSOMNIA
     Dosage: 1 MG;HS;ORAL ; 2 MG;1X;ORAL
     Route: 048
     Dates: start: 20051001, end: 20051001
  3. ZOLOFT [Concomitant]

REACTIONS (3)
  - DYSGEUSIA [None]
  - INSOMNIA [None]
  - MALAISE [None]
